FAERS Safety Report 6400884-1 (Version None)
Quarter: 2009Q4

REPORT INFORMATION
  Report Type: 
  Country: None (occurrence: None)
  Receive Date: 20091009
  Receipt Date: 20090928
  Transmission Date: 20100525
  Serious: Yes (Congenital Anomaly)
  Sender: FDA-Public Use
  Company Number: 231313J09USA

PATIENT
  Sex: Male

DRUGS (3)
  1. REBIF [Suspect]
     Indication: MULTIPLE SCLEROSIS
     Dosage: TRANSPLACENTAL
     Route: 064
     Dates: end: 20081001
  2. MIRAPEX [Suspect]
     Indication: RESTLESS LEGS SYNDROME
     Dosage: TRANSPLACENTAL
     Route: 064
  3. EFFEXOR [Suspect]
     Indication: DEPRESSION
     Dosage: TRANSPLACENTAL
     Route: 064

REACTIONS (5)
  - EATING DISORDER [None]
  - HEART DISEASE CONGENITAL [None]
  - MATERNAL DRUGS AFFECTING FOETUS [None]
  - PREMATURE BABY [None]
  - TRISOMY 21 [None]
